FAERS Safety Report 12242065 (Version 1)
Quarter: 2016Q2

REPORT INFORMATION
  Report Type: Spontaneous
  Country: US (occurrence: US)
  Receive Date: 20160406
  Receipt Date: 20160406
  Transmission Date: 20160815
  Serious: Yes (Hospitalization, Other)
  Sender: FDA-Public Use
  Company Number: US-SA-2016SA064810

PATIENT
  Age: 72 Year
  Sex: Female
  Weight: 99.8 kg

DRUGS (16)
  1. DETROL LA [Concomitant]
     Active Substance: TOLTERODINE TARTRATE
  2. LEVOTHYROXINE. [Concomitant]
     Active Substance: LEVOTHYROXINE
     Dates: end: 201510
  3. KLONOPIN [Concomitant]
     Active Substance: CLONAZEPAM
  4. DARAPRIM [Suspect]
     Active Substance: PYRIMETHAMINE
     Indication: TOXOPLASMOSIS
     Route: 048
     Dates: start: 20150922, end: 20151015
  5. LIPITOR [Concomitant]
     Active Substance: ATORVASTATIN CALCIUM
  6. PLAVIX [Suspect]
     Active Substance: CLOPIDOGREL BISULFATE
     Route: 065
     Dates: end: 201510
  7. ULORIC [Concomitant]
     Active Substance: FEBUXOSTAT
  8. LEVOTHYROXINE. [Concomitant]
     Active Substance: LEVOTHYROXINE
     Dates: start: 20151019
  9. BYSTOLIC [Concomitant]
     Active Substance: NEBIVOLOL HYDROCHLORIDE
     Dates: start: 20151019
  10. DIAZEPAM. [Concomitant]
     Active Substance: DIAZEPAM
  11. FUROSEMIDE. [Concomitant]
     Active Substance: FUROSEMIDE
  12. TRAMADOL. [Concomitant]
     Active Substance: TRAMADOL
  13. FLUOXETINE [Concomitant]
     Active Substance: FLUOXETINE HYDROCHLORIDE
  14. LEUCOVORIN. [Concomitant]
     Active Substance: LEUCOVORIN
  15. CELEBREX [Concomitant]
     Active Substance: CELECOXIB
  16. IMDUR [Concomitant]
     Active Substance: ISOSORBIDE MONONITRATE

REACTIONS (13)
  - Cardiac failure congestive [Unknown]
  - General physical health deterioration [Unknown]
  - Anaemia macrocytic [Unknown]
  - Fatigue [Unknown]
  - Memory impairment [Unknown]
  - Asthenia [Unknown]
  - Blood cholesterol increased [Unknown]
  - Thrombocytopenia [Unknown]
  - Fall [Unknown]
  - Decreased appetite [Unknown]
  - Cardiac stress test abnormal [Unknown]
  - Dyspnoea exertional [Unknown]
  - Acute kidney injury [Unknown]

NARRATIVE: CASE EVENT DATE: 2015
